FAERS Safety Report 5854452-0 (Version None)
Quarter: 2008Q3

REPORT INFORMATION
  Report Type: 
  Country: None (occurrence: None)
  Receive Date: 20080822
  Receipt Date: 20080811
  Transmission Date: 20090109
  Serious: Yes (Death, Life-Threatening)
  Sender: FDA-Public Use
  Company Number: JP-PFIZER INC-2008051976

PATIENT
  Sex: Male
  Weight: 55 kg

DRUGS (2)
  1. DETRUSITOL SR [Suspect]
     Indication: HYPERTONIC BLADDER
     Route: 048
     Dates: start: 20070521, end: 20071122
  2. URIEF [Concomitant]
     Route: 048

REACTIONS (1)
  - LEUKAEMIA [None]
